FAERS Safety Report 19733595 (Version 2)
Quarter: 2021Q4

REPORT INFORMATION
  Report Type: Spontaneous
  Country: GB (occurrence: GB)
  Receive Date: 20210823
  Receipt Date: 20211112
  Transmission Date: 20220303
  Serious: Yes (Other)
  Sender: FDA-Public Use
  Company Number: GB-AMGEN-GBRSP2021127616

PATIENT
  Age: 68 Year
  Sex: Female
  Weight: 87.5 kg

DRUGS (1)
  1. ARANESP [Suspect]
     Active Substance: DARBEPOETIN ALFA
     Indication: Anaemia
     Dosage: 100 MICROGRAM, Q4WK
     Route: 065

REACTIONS (3)
  - Procedural haemorrhage [Unknown]
  - Knee arthroplasty [Unknown]
  - Device difficult to use [Unknown]

NARRATIVE: CASE EVENT DATE: 20210720
